FAERS Safety Report 10668257 (Version 1)
Quarter: 2014Q4

REPORT INFORMATION
  Report Type: Report from Study
  Country: IL (occurrence: IL)
  Receive Date: 20141222
  Receipt Date: 20141222
  Transmission Date: 20150529
  Serious: Yes (Other)
  Sender: FDA-Public Use
  Company Number: IL-SA-2014SA172969

PATIENT
  Age: 54 Year
  Sex: Male

DRUGS (3)
  1. ALLORIL [Concomitant]
     Indication: GOUT
     Dosage: START DATE: 2010-2011
     Route: 048
  2. LIPITOR [Concomitant]
     Active Substance: ATORVASTATIN CALCIUM
     Indication: HYPERCHOLESTEROLAEMIA
     Route: 048
     Dates: start: 2014
  3. CEREZYME [Suspect]
     Active Substance: IMIGLUCERASE
     Indication: GAUCHER^S DISEASE
     Dosage: DOSE:1200 UNIT(S)
     Route: 042
     Dates: start: 2010

REACTIONS (2)
  - Cataract [Not Recovered/Not Resolved]
  - Cataract [Unknown]
